FAERS Safety Report 9487125 (Version 1)
Quarter: 2013Q3

REPORT INFORMATION
  Report Type: Spontaneous
  Country: US (occurrence: US)
  Receive Date: 20130829
  Receipt Date: 20130829
  Transmission Date: 20140515
  Serious: Yes (Hospitalization)
  Sender: FDA-Public Use
  Company Number: US-WATSON-2013-15275

PATIENT
  Age: 18 Year
  Sex: Female

DRUGS (1)
  1. NEXT CHOICE (WATSON LABORATORIES) [Suspect]
     Indication: PRODUCT USED FOR UNKNOWN INDICATION
     Dosage: 0.75 MG, AS DIRECTED
     Route: 065

REACTIONS (1)
  - Unevaluable event [Unknown]
